FAERS Safety Report 15153359 (Version 1)
Quarter: 2018Q4

REPORT INFORMATION
  Report Type: Spontaneous
  Country: ES (occurrence: ES)
  Receive Date: 20180717
  Receipt Date: 20180717
  Transmission Date: 20190204
  Serious: No
  Sender: FDA-Public Use
  Company Number: ES-B. BRAUN MEDICAL INC.-2052217

PATIENT
  Age: 22 Year
  Sex: Female

DRUGS (4)
  1. AMOXICILLAN [Suspect]
     Active Substance: AMOXICILLIN
     Dates: start: 20180207, end: 20180207
  2. CLARITHROMYCIN. [Suspect]
     Active Substance: CLARITHROMYCIN
     Dates: start: 20180207, end: 20180207
  3. ESOMEPRAZOLE. [Suspect]
     Active Substance: ESOMEPRAZOLE MAGNESIUM
     Dates: start: 20180227, end: 20180227
  4. METRONIDAZOLE INJECTION USP (5 MG/ML) IN PAB? PLASTIC CONTAINER (NDA 0 [Suspect]
     Active Substance: METRONIDAZOLE
     Dates: start: 20180207, end: 20180207

REACTIONS (1)
  - Rash [Recovering/Resolving]

NARRATIVE: CASE EVENT DATE: 20180207
